FAERS Safety Report 4945948-4 (Version None)
Quarter: 2006Q1

REPORT INFORMATION
  Report Type: 
  Country: None (occurrence: None)
  Receive Date: 20060206
  Receipt Date: 20050222
  Transmission Date: 20060701
  Serious: No
  Sender: FDA-Public Use
  Company Number: 05P-163-0292082-00

PATIENT
  Sex: Male

DRUGS (1)
  1. NIMBEX [Suspect]
     Indication: NEUROMUSCULAR BLOCKADE
     Dosage: 150 MG, ONCE, INTRAVENOUS
     Route: 042

REACTIONS (2)
  - MEDICATION ERROR [None]
  - OVERDOSE [None]
